FAERS Safety Report 9803023 (Version 1)
Quarter: 2014Q1

REPORT INFORMATION
  Report Type: Spontaneous
  Country: US (occurrence: None)
  Receive Date: 20140106
  Receipt Date: 20140106
  Transmission Date: 20141002
  Serious: No
  Sender: FDA-Public Use
  Company Number: None

PATIENT
  Age: 76 Year
  Sex: Female
  Weight: 58.97 kg

DRUGS (8)
  1. NIASPAN ER [Suspect]
     Indication: BLOOD CHOLESTEROL
     Dosage: 1 PILL DAILY BY MOUTH
     Route: 048
     Dates: start: 20131204, end: 20131215
  2. DEXILANT [Concomitant]
  3. METOPROLOL [Concomitant]
  4. PREMARIN [Concomitant]
  5. BABY ASPIRIN [Concomitant]
  6. FERROUS SULFATE [Concomitant]
  7. CALCIUM [Concomitant]
  8. VIT E [Concomitant]

REACTIONS (5)
  - Pruritus [None]
  - Eye pruritus [None]
  - Insomnia [None]
  - Vision blurred [None]
  - Drug ineffective [None]
